FAERS Safety Report 21265718 (Version 1)
Quarter: 2022Q3

REPORT INFORMATION
  Report Type: Spontaneous
  Country: US (occurrence: US)
  Receive Date: 20220829
  Receipt Date: 20220829
  Transmission Date: 20221026
  Serious: No
  Sender: FDA-Public Use
  Company Number: US-BSC-2022000088

PATIENT
  Age: 65 Year
  Sex: Male

DRUGS (1)
  1. VARITHENA [Suspect]
     Active Substance: POLIDOCANOL
     Indication: Wound

REACTIONS (2)
  - Off label use [Unknown]
  - No adverse event [Unknown]
